FAERS Safety Report 15792632 (Version 1)
Quarter: 2019Q1

REPORT INFORMATION
  Report Type: Spontaneous
  Country: US (occurrence: US)
  Receive Date: 20190107
  Receipt Date: 20190107
  Transmission Date: 20190417
  Serious: No
  Sender: FDA-Public Use
  Company Number: US-HORIZON-PRE-0004-2019

PATIENT
  Age: 70 Year
  Sex: Female

DRUGS (1)
  1. RAYOS [Suspect]
     Active Substance: PREDNISONE
     Indication: OSTEOARTHRITIS
     Dosage: TWO TABLETS (2 MG/5 MG) FOR FOUR WEEKS AND THEN ONE TABLET A DAY AT 9PM UNTIL FOLLOW UP WITH DOCTOR
     Route: 048

REACTIONS (2)
  - Off label use [Unknown]
  - Arthralgia [Unknown]
